FAERS Safety Report 6470082-4 (Version None)
Quarter: 2009Q4

REPORT INFORMATION
  Report Type: 
  Country: None (occurrence: None)
  Receive Date: 20091203
  Receipt Date: 20091202
  Transmission Date: 20100525
  Serious: Yes (Other)
  Sender: FDA-Public Use
  Company Number: ZA-PFIZER INC-2009304626

PATIENT
  Age: 55 Year
  Sex: Female

DRUGS (2)
  1. ASPAVOR [Suspect]
     Indication: BLOOD CHOLESTEROL INCREASED
     Dosage: 10 MG, 1X/DAY
     Route: 048
     Dates: start: 20080101, end: 20091201
  2. ELTROXIN [Concomitant]
     Dosage: UNK
     Route: 048

REACTIONS (7)
  - ACNE [None]
  - CEREBROVASCULAR ACCIDENT [None]
  - CONSTIPATION [None]
  - DIPLOPIA [None]
  - FATIGUE [None]
  - INSOMNIA [None]
  - THINKING ABNORMAL [None]
